FAERS Safety Report 8506351-3 (Version None)
Quarter: 2012Q3

REPORT INFORMATION
  Report Type: 
  Country: None (occurrence: None)
  Receive Date: 20120706
  Receipt Date: 20120706
  Transmission Date: 20120928
  Serious: Yes (Life-Threatening, Hospitalization)
  Sender: FDA-Public Use
  Company Number: None

PATIENT
  Sex: Male
  Weight: 63.5036 kg

DRUGS (2)
  1. ZITHROMAX [Suspect]
  2. AZITHROMYCIN [Suspect]
     Indication: EAR INFECTION
     Dosage: 2 PILLS FIRST DAY 1 PILLS EVERY DAY FOR 5 DAYS

REACTIONS (5)
  - MYOCARDIAL INFARCTION [None]
  - CHEST PAIN [None]
  - APPARENT LIFE THREATENING EVENT [None]
  - BLOOD GLUCOSE INCREASED [None]
  - DYSPNOEA [None]
